FAERS Safety Report 25393706 (Version 2)
Quarter: 2025Q2

REPORT INFORMATION
  Report Type: Spontaneous
  Country: EG (occurrence: EG)
  Receive Date: 20250604
  Receipt Date: 20250612
  Transmission Date: 20250717
  Serious: Yes (Life-Threatening)
  Sender: NOVO NORDISK
  Company Number: EG-NOVOPROD-1441280

PATIENT
  Sex: Female
  Weight: 75 kg

DRUGS (1)
  1. INSULIN HUMAN [Suspect]
     Active Substance: INSULIN HUMAN
     Indication: Type 2 diabetes mellitus
     Dosage: 50 IU, QD (35 U/MORNING AND 15/NIGHT)
     Route: 058

REACTIONS (3)
  - Limb injury [Recovered/Resolved]
  - Pain [Unknown]
  - Wrong technique in product usage process [Unknown]
